FAERS Safety Report 4268814-9 (Version None)
Quarter: 2004Q1

REPORT INFORMATION
  Report Type: 
  Country: None (occurrence: None)
  Receive Date: 20040113
  Receipt Date: 20031218
  Transmission Date: 20041129
  Serious: Yes (Hospitalization)
  Sender: FDA-Public Use
  Company Number: 200322827GDDC

PATIENT
  Age: 53 Year
  Sex: Female
  Weight: 58 kg

DRUGS (2)
  1. DOCETAXEL [Suspect]
     Indication: BREAST CANCER
     Route: 042
     Dates: start: 20031126, end: 20031126
  2. DEXAMETHASONE [Concomitant]
     Dates: start: 20031126, end: 20031217

REACTIONS (6)
  - ACIDOSIS [None]
  - BLOOD GLUCOSE INCREASED [None]
  - BLOOD PH DECREASED [None]
  - DIABETES MELLITUS INADEQUATE CONTROL [None]
  - SEPSIS [None]
  - SOFT TISSUE INFLAMMATION [None]
